FAERS Safety Report 9288889 (Version 1)
Quarter: 2013Q2

REPORT INFORMATION
  Report Type: Report from Study
  Country: NZ (occurrence: NZ)
  Receive Date: 20130514
  Receipt Date: 20130514
  Transmission Date: 20140414
  Serious: Yes (Hospitalization)
  Sender: FDA-Public Use
  Company Number: PHHY2013NZ041439

PATIENT
  Age: 24 Year
  Sex: Male

DRUGS (5)
  1. CLOZARIL [Suspect]
     Indication: SCHIZOPHRENIA
     Dosage: 200 MG
     Dates: start: 20130408
  2. CLOZARIL [Suspect]
     Dosage: UNK
     Dates: end: 20130424
  3. RISPERIDONE [Concomitant]
     Route: 048
  4. QUETIAPINE [Concomitant]
     Route: 048
  5. OLANZAPINE [Concomitant]
     Route: 048

REACTIONS (6)
  - N-terminal prohormone brain natriuretic peptide increased [Unknown]
  - C-reactive protein increased [Recovered/Resolved]
  - Troponin increased [Recovered/Resolved]
  - Body temperature increased [Unknown]
  - Chest pain [Unknown]
  - Neutrophil count decreased [Recovered/Resolved]
